FAERS Safety Report 12401408 (Version 1)
Quarter: 2016Q2

REPORT INFORMATION
  Report Type: Spontaneous
  Country: US (occurrence: US)
  Receive Date: 20160525
  Receipt Date: 20160525
  Transmission Date: 20160815
  Serious: No
  Sender: FDA-Public Use
  Company Number: US-BAYER-2016-100072

PATIENT
  Age: 65 Year
  Sex: Female
  Weight: 68.27 kg

DRUGS (2)
  1. MIRALAX [Suspect]
     Active Substance: POLYETHYLENE GLYCOL 3350
     Indication: COLONOSCOPY
  2. DULCOLAX PICOSULFAT [Concomitant]

REACTIONS (2)
  - Expired product administered [None]
  - Off label use [None]

NARRATIVE: CASE EVENT DATE: 201605
